FAERS Safety Report 7243795-4 (Version None)
Quarter: 2011Q1

REPORT INFORMATION
  Report Type: 
  Country: None (occurrence: None)
  Receive Date: 20110118
  Receipt Date: 20101129
  Transmission Date: 20110831
  Serious: Yes (Death, Hospitalization)
  Sender: FDA-Public Use
  Company Number: 2010000543

PATIENT
  Age: 73 Year
  Sex: Male
  Weight: 58.8 kg

DRUGS (16)
  1. NATEGLINIDE [Concomitant]
  2. FERROMIA (FERROUS CITRATE) [Concomitant]
  3. INDAPAMIDE [Concomitant]
  4. ADONA (CARBAZOCHROME SODIUM SULFONATE) [Concomitant]
  5. LOSARTAN POTASSIUM AND HYDROCHLOROTHIAZIDE [Concomitant]
  6. HYZAAR [Concomitant]
  7. OMEPRAZOLE [Suspect]
     Indication: PRODUCT USED FOR UNKNOWN INDICATION
     Dosage: ORAL
     Route: 048
     Dates: start: 20090626, end: 20090707
  8. TRANSAMIN (TRANEXAMIC ACID) [Concomitant]
  9. PARIET (PANTOPRAZOLE SODIUM) [Concomitant]
  10. NAIXAN (NAPROXEN SODIUM) [Suspect]
     Indication: PYREXIA
     Dosage: (300 MG,QD),ORAL
     Route: 048
     Dates: start: 20090501, end: 20090701
  11. CINAL (CINAL) [Concomitant]
  12. ERLOTINIB (ERLOTINIB) (TABLET) (ERLOTINIB) [Suspect]
     Indication: LUNG ADENOCARCINOMA
     Dosage: (150 MG,1 IN 1 D),ORAL
     Route: 048
     Dates: start: 20090306, end: 20090719
  13. CALBLOCK [Concomitant]
  14. LIVALO [Concomitant]
  15. OLMETEC [Concomitant]
  16. RULID (ROXITHROMYCIN) [Suspect]
     Indication: PRODUCT USED FOR UNKNOWN INDICATION
     Dosage: ORAL
     Route: 048
     Dates: end: 20090318

REACTIONS (21)
  - CIRCULATORY COLLAPSE [None]
  - RESPIRATORY FAILURE [None]
  - HAEMATEMESIS [None]
  - HEPATIC CYST [None]
  - NEPHROSCLEROSIS [None]
  - CYSTITIS [None]
  - DUODENAL PERFORATION [None]
  - RENAL TUBULAR NECROSIS [None]
  - PERICARDITIS [None]
  - CONDITION AGGRAVATED [None]
  - PNEUMONIA [None]
  - EOSINOPHIL COUNT INCREASED [None]
  - PERITONITIS [None]
  - PERIHEPATIC ABSCESS [None]
  - GASTRITIS ATROPHIC [None]
  - RENAL FAILURE [None]
  - LUNG ADENOCARCINOMA [None]
  - NEOPLASM MALIGNANT [None]
  - NECROSIS [None]
  - RENAL CYST [None]
  - HEPATIC FAILURE [None]
